FAERS Safety Report 23267750 (Version 1)
Quarter: 2023Q4

REPORT INFORMATION
  Report Type: Spontaneous
  Country: US (occurrence: US)
  Receive Date: 20231206
  Receipt Date: 20231206
  Transmission Date: 20240110
  Serious: Yes (Other)
  Sender: FDA-Public Use
  Company Number: US-SUN PHARMACEUTICAL INDUSTRIES LTD-2023R1-421922

PATIENT
  Age: 15 Year
  Sex: Male

DRUGS (2)
  1. PREDNISONE [Suspect]
     Active Substance: PREDNISONE
     Indication: Chorioretinitis
     Dosage: 10 MILLIGRAM, DAILY
     Route: 048
  2. ADALIMUMAB [Suspect]
     Active Substance: ADALIMUMAB\ISOPROPYL ALCOHOL
     Indication: Chorioretinitis
     Dosage: 40 MILLIGRAM/SQ. METER
     Route: 058

REACTIONS (1)
  - Disease recurrence [Unknown]
